FAERS Safety Report 7450993-3 (Version None)
Quarter: 2011Q2

REPORT INFORMATION
  Report Type: 
  Country: None (occurrence: None)
  Receive Date: 20110429
  Receipt Date: 20110429
  Transmission Date: 20111010
  Serious: Yes (Hospitalization)
  Sender: FDA-Public Use
  Company Number: None

PATIENT
  Sex: Female
  Weight: 58 kg

DRUGS (6)
  1. PREDNISONE [Suspect]
     Dosage: 1620 MG
     Dates: end: 20101018
  2. ONCASPAR [Suspect]
     Dosage: 3234 MG
     Dates: end: 20101004
  3. VINCRISTINE SULFATE [Suspect]
     Dosage: 6MG
     Dates: end: 20101015
  4. METHOTREXATE [Suspect]
     Dosage: 30 MG
  5. CYTARABINE [Suspect]
     Dosage: 70MG
     Dates: end: 20100920
  6. DAUNORUBICIN HCL [Suspect]
     Dosage: 114 MG
     Dates: end: 20101015

REACTIONS (14)
  - BLOOD PHOSPHORUS INCREASED [None]
  - HYPERGLYCAEMIA [None]
  - LOSS OF CONSCIOUSNESS [None]
  - SYNCOPE [None]
  - MUSCULOSKELETAL STIFFNESS [None]
  - CONVULSION [None]
  - DYSMENORRHOEA [None]
  - ANXIETY [None]
  - HEAD INJURY [None]
  - BLOOD CALCIUM DECREASED [None]
  - FLUID INTAKE REDUCED [None]
  - FALL [None]
  - MENORRHAGIA [None]
  - DIZZINESS [None]
